FAERS Safety Report 6181934-7 (Version None)
Quarter: 2009Q2

REPORT INFORMATION
  Report Type: 
  Country: None (occurrence: None)
  Receive Date: 20090505
  Receipt Date: 20090423
  Transmission Date: 20091009
  Serious: Yes (Hospitalization)
  Sender: FDA-Public Use
  Company Number: OPER20090091

PATIENT
  Sex: Male

DRUGS (2)
  1. OPANA ER [Suspect]
     Indication: PAIN
     Dosage: PER ORAL
     Route: 048
     Dates: start: 20090101, end: 20090101
  2. DILAUDID [Suspect]
     Indication: PAIN
     Dosage: PER ORAL
     Route: 048
     Dates: end: 20090101

REACTIONS (1)
  - PANCREATITIS [None]
